FAERS Safety Report 6436925-5 (Version None)
Quarter: 2009Q4

REPORT INFORMATION
  Report Type: 
  Country: None (occurrence: None)
  Receive Date: 20091111
  Receipt Date: 20091030
  Transmission Date: 20100525
  Serious: Yes (Other)
  Sender: FDA-Public Use
  Company Number: PHHY2009CA47462

PATIENT
  Sex: Female

DRUGS (2)
  1. DIOVAN [Suspect]
     Dosage: 80 MG, UNK
     Route: 048
     Dates: start: 20090201
  2. DIOVAN [Suspect]
     Dosage: 40 MG, UNK
     Route: 048

REACTIONS (2)
  - INFARCTION [None]
  - STENT PLACEMENT [None]
